FAERS Safety Report 6910475-1 (Version None)
Quarter: 2010Q3

REPORT INFORMATION
  Report Type: 
  Country: None (occurrence: None)
  Receive Date: 20100806
  Receipt Date: 20100728
  Transmission Date: 20110219
  Serious: Yes (Other)
  Sender: FDA-Public Use
  Company Number: BR-ASTRAZENECA-2010SE35630

PATIENT
  Age: 63 Year
  Sex: Female

DRUGS (1)
  1. ATACAND [Suspect]
     Indication: HYPERTENSION
     Dosage: DAILY
     Route: 048
     Dates: end: 20100726

REACTIONS (2)
  - DRUG DOSE OMISSION [None]
  - NASAL NEOPLASM [None]
